FAERS Safety Report 8458329-6 (Version None)
Quarter: 2012Q2

REPORT INFORMATION
  Report Type: 
  Country: None (occurrence: None)
  Receive Date: 20120615
  Receipt Date: 20120601
  Transmission Date: 20120825
  Serious: Yes (Hospitalization, Other)
  Sender: FDA-Public Use
  Company Number: CIP11000526

PATIENT
  Age: 63 Year
  Sex: Female

DRUGS (22)
  1. ESTRACE [Concomitant]
  2. SENNA (SENNOSIDE A+B) [Concomitant]
  3. CIPRO [Concomitant]
  4. SENNA S (DOCUSATE SODIUM, SENNOSIDE A+B) [Concomitant]
  5. GLUCOSAMINE (GLUCOSAMINE) [Concomitant]
  6. GARLIC (ALLIUM SATIVUM) [Concomitant]
  7. EFFEXOR [Concomitant]
  8. FISH OIL (FISH OIL) [Concomitant]
  9. VITAMIN B COMPLEX (CYANOCOBALAMIN) [Concomitant]
  10. MULTIPLE VITAMINS (ASCORBIC ACID, ERGOCALCIFEROL, FOLIC ACID, RETINOL, [Concomitant]
  11. TUMS (CALCIUM CARBONATE, MAGNESIUM CARBONATE, MAGNESIUM TRISILICATE) [Concomitant]
  12. FLAXSEED OIL (LINUM USITATISSIMUM SEED OIL) [Concomitant]
  13. ZYLET [Concomitant]
  14. ACETAMINOPHEN W/CODEINE, PARACETAMOL) [Concomitant]
  15. ACETAMINOPHEN [Concomitant]
  16. ACTONEL [Suspect]
     Indication: STRESS FRACTURE
     Dosage: 150 MG, ONCE MONTHLY, ORAL
     Route: 048
     Dates: start: 20081030, end: 20100928
  17. TESTOSTERONE [Concomitant]
  18. CHOLECALCIFEROL (COLECALCIFEROL) [Concomitant]
  19. CALAN [Concomitant]
  20. HYZAAR (HYDROCHLOROTHIAZIDE, LOSARTAN) [Concomitant]
  21. HYDROCODONE W/APAP (HYDROCODONE, PARACETAMOL) [Concomitant]
  22. HALFLYTELY (MACROGOL, POTASSIUM CHLORIDE, SODIUM BICARBONATE) [Concomitant]

REACTIONS (9)
  - FRACTURE DELAYED UNION [None]
  - MUSCLE STRAIN [None]
  - HAEMOGLOBIN DECREASED [None]
  - ATYPICAL FEMUR FRACTURE [None]
  - MUSCLE SPASMS [None]
  - ARTHRALGIA [None]
  - HAEMATOCRIT DECREASED [None]
  - FALL [None]
  - POST PROCEDURAL COMPLICATION [None]
